FAERS Safety Report 22606009 (Version 2)
Quarter: 2023Q2

REPORT INFORMATION
  Report Type: Spontaneous
  Country: US (occurrence: US)
  Receive Date: 20230615
  Receipt Date: 20230615
  Transmission Date: 20230721
  Serious: Yes (Other)
  Sender: FDA-Public Use
  Company Number: US-ALCON LABORATORIES-ALC2023US002524

PATIENT
  Sex: Male

DRUGS (1)
  1. SYSTANE COMPLETE [Suspect]
     Active Substance: PROPYLENE GLYCOL
     Indication: Product used for unknown indication
     Dosage: EACH EYE TWICE A DAY, BID
     Route: 047

REACTIONS (6)
  - Chemical burns of eye [Recovered/Resolved]
  - Chemical burn [Recovered/Resolved]
  - Chemical burn of skin [Recovered/Resolved]
  - Hypersensitivity [Recovered/Resolved]
  - Swelling face [Recovered/Resolved]
  - Visual impairment [Recovered/Resolved]
